FAERS Safety Report 5413990-5 (Version None)
Quarter: 2007Q3

REPORT INFORMATION
  Report Type: 
  Country: None (occurrence: None)
  Receive Date: 20070814
  Receipt Date: 20070803
  Transmission Date: 20080115
  Serious: Yes (Hospitalization)
  Sender: FDA-Public Use
  Company Number: US-ELI_LILLY_AND_COMPANY-US200708000827

PATIENT
  Age: 75 Year
  Sex: Female

DRUGS (2)
  1. FORTEO [Suspect]
     Dates: start: 20070228
  2. XANAX [Concomitant]
     Dates: start: 19920101

REACTIONS (4)
  - ABNORMAL DREAMS [None]
  - DRUG DETOXIFICATION [None]
  - HEADACHE [None]
  - NIGHT SWEATS [None]
